FAERS Safety Report 14265450 (Version 1)
Quarter: 2017Q4

REPORT INFORMATION
  Report Type: Spontaneous
  Country: US (occurrence: US)
  Receive Date: 20171208
  Receipt Date: 20171208
  Transmission Date: 20180321
  Serious: No
  Sender: FDA-Public Use
  Company Number: US-MYLANLABS-2017M1073335

PATIENT
  Sex: Female

DRUGS (3)
  1. ENALAPRIL [Suspect]
     Active Substance: ENALAPRIL
     Indication: PRODUCT USED FOR UNKNOWN INDICATION
     Dosage: 5 MG, UNK
     Route: 048
     Dates: start: 20170921
  2. ENALAPRIL [Suspect]
     Active Substance: ENALAPRIL
     Dosage: 5 MG, UNK
     Route: 048
     Dates: start: 20171019
  3. ENALAPRIL [Suspect]
     Active Substance: ENALAPRIL
     Dosage: UNK
     Route: 048

REACTIONS (2)
  - Cough [Unknown]
  - Respiratory disorder [Unknown]
